FAERS Safety Report 4657467-3 (Version None)
Quarter: 2005Q2

REPORT INFORMATION
  Report Type: 
  Country: None (occurrence: None)
  Receive Date: 20050509
  Receipt Date: 20050509
  Transmission Date: 20051028
  Serious: Yes (Other)
  Sender: FDA-Public Use
  Company Number: None

PATIENT
  Age: 40 Year
  Sex: Female
  Weight: 68.9467 kg

DRUGS (1)
  1. PAXIL [Suspect]
     Indication: MIGRAINE PROPHYLAXIS
     Dosage: 20 MG DAILY

REACTIONS (13)
  - AGGRESSION [None]
  - ANGER [None]
  - ASTHENIA [None]
  - CHEST PAIN [None]
  - DEPRESSION [None]
  - DIZZINESS [None]
  - DRUG WITHDRAWAL SYNDROME [None]
  - FATIGUE [None]
  - FEELING ABNORMAL [None]
  - HOSTILITY [None]
  - HOT FLUSH [None]
  - NASAL SINUS DRAINAGE [None]
  - SUICIDE ATTEMPT [None]
